FAERS Safety Report 4740830-X (Version None)
Quarter: 2005Q3

REPORT INFORMATION
  Report Type: 
  Country: None (occurrence: None)
  Receive Date: 20050810
  Receipt Date: 20040922
  Transmission Date: 20060218
  Serious: No
  Sender: FDA-Public Use
  Company Number: US-GLAXOSMITHKLINE-A0526903A

PATIENT
  Age: 59 Year
  Sex: Female

DRUGS (2)
  1. TAGAMET HB 200 [Suspect]
  2. ARTHROTEC [Concomitant]

REACTIONS (2)
  - INTENTIONAL MISUSE [None]
  - NO ADVERSE DRUG EFFECT [None]
